FAERS Safety Report 8233129-0 (Version None)
Quarter: 2012Q1

REPORT INFORMATION
  Report Type: 
  Country: None (occurrence: None)
  Receive Date: 20120326
  Receipt Date: 20120315
  Transmission Date: 20120608
  Serious: Yes (Hospitalization, Other)
  Sender: FDA-Public Use
  Company Number: AU-PAR PHARMACEUTICAL, INC-2012SCPR004284

PATIENT

DRUGS (26)
  1. CELECOXIB [Interacting]
     Indication: PAIN
  2. PRAVASTATIN [Suspect]
     Indication: BLOOD CHOLESTEROL INCREASED
     Dosage: 40 MG, UNKNOWN
     Route: 065
  3. CEPHALEXIN [Concomitant]
     Indication: PRODUCT USED FOR UNKNOWN INDICATION
     Dosage: UNK, UNKNOWN
     Route: 065
  4. ERYTHROMYCIN [Concomitant]
     Indication: PRODUCT USED FOR UNKNOWN INDICATION
     Dosage: UNK, UNKNOWN
     Route: 065
  5. TENORMIN [Concomitant]
     Indication: PRODUCT USED FOR UNKNOWN INDICATION
     Dosage: 12.5 MG, / DAY
     Route: 065
  6. TRAMADOL HCL [Interacting]
     Indication: SOMATOFORM DISORDER
     Dosage: UNK UNK, PRN
     Route: 065
  7. CITALOPRAM HYDROBROMIDE [Suspect]
     Indication: STRESS AT WORK
     Dosage: 60 MG, / DAY
     Route: 065
  8. VALACICLOVIR [Concomitant]
     Indication: HERPES ZOSTER
     Dosage: UNK, UNKNOWN
     Route: 065
  9. FLUTICASONE PROPIONATE/SALMETEROL [Concomitant]
     Indication: PRODUCT USED FOR UNKNOWN INDICATION
     Dosage: UNK, UNKNOWN
     Route: 065
  10. DIAZEPAM [Suspect]
     Indication: PRODUCT USED FOR UNKNOWN INDICATION
     Dosage: 5 MG, PRN
     Route: 065
  11. VENLAFAXINE [Suspect]
     Indication: STRESS AT WORK
     Dosage: 300 MG, / DAY
     Route: 065
  12. METOCLOPRAMIDE [Interacting]
     Indication: PRODUCT USED FOR UNKNOWN INDICATION
     Dosage: UNK UNK, PRN
     Route: 065
  13. ATORVASTATIN [Suspect]
     Indication: BLOOD CHOLESTEROL INCREASED
     Dosage: UNK, UNKNOWN
     Route: 065
  14. PAROXETINE HCL [Suspect]
     Dosage: UNK UNK, UNKNOWN
     Route: 065
  15. PREMARIN [Suspect]
     Indication: MENOPAUSE
     Dosage: 0.625 MG, UNKNOWN
     Route: 065
  16. SIMVASTATIN [Suspect]
     Indication: BLOOD CHOLESTEROL INCREASED
     Dosage: UNK, UNKNOWN
     Route: 065
  17. IRBESARTAN [Concomitant]
     Indication: HYPERTENSION
     Dosage: 300 MG, / DAY
     Route: 065
  18. LEVOTHYROXINE SODIUM [Concomitant]
     Indication: PRODUCT USED FOR UNKNOWN INDICATION
     Dosage: 100 MG, / DAY
     Route: 065
  19. INFLUENZA [Concomitant]
     Indication: INFLUENZA IMMUNISATION
     Route: 065
  20. CELECOXIB [Interacting]
     Indication: SOMATOFORM DISORDER
     Dosage: UNK, UNKNOWN
     Route: 065
  21. PENICILLIN [Concomitant]
     Indication: PRODUCT USED FOR UNKNOWN INDICATION
     Dosage: UNK, UNKNOWN
     Route: 065
  22. TRAMADOL HCL [Interacting]
     Indication: PAIN
  23. FLUOXETINE [Suspect]
     Indication: PRODUCT USED FOR UNKNOWN INDICATION
     Dosage: UNK, UNKNOWN
     Route: 065
  24. PAROXETINE HCL [Suspect]
     Indication: STRESS AT WORK
     Dosage: 60 MG, / DAY
     Route: 065
  25. LOVASTATIN [Suspect]
     Indication: BLOOD CHOLESTEROL INCREASED
     Dosage: UNK, UNKNOWN
     Route: 065
  26. ANTIBIOTICS [Concomitant]
     Indication: PRODUCT USED FOR UNKNOWN INDICATION
     Dosage: UNK, UNKNOWN
     Route: 065

REACTIONS (6)
  - SEROTONIN SYNDROME [None]
  - SUICIDAL BEHAVIOUR [None]
  - AKATHISIA [None]
  - PHYSICAL ASSAULT [None]
  - TOXICITY TO VARIOUS AGENTS [None]
  - DRUG INTERACTION [None]
